FAERS Safety Report 18964398 (Version 1)
Quarter: 2021Q1

REPORT INFORMATION
  Report Type: Spontaneous
  Country: US (occurrence: US)
  Receive Date: 20210303
  Receipt Date: 20210303
  Transmission Date: 20210420
  Serious: No
  Sender: FDA-Public Use
  Company Number: US-AMNEAL PHARMACEUTICALS-2020-AMRX-03109

PATIENT
  Sex: Male

DRUGS (3)
  1. RYTARY [Suspect]
     Active Substance: CARBIDOPA\LEVODOPA
     Dosage: 36.25/145 MG, 4 CAPSULES, TID
     Route: 048
     Dates: end: 20210210
  2. RYTARY [Suspect]
     Active Substance: CARBIDOPA\LEVODOPA
     Dosage: 61.25/245MG, 2 CAPSULES, 4 /DAY (AT 7AM, 12PM, 5PM, AND 10PM)
     Route: 048
     Dates: start: 20210210
  3. RYTARY [Suspect]
     Active Substance: CARBIDOPA\LEVODOPA
     Indication: PARKINSON^S DISEASE
     Dosage: UNK (OLDER DOSE)
     Route: 048

REACTIONS (6)
  - Gait disturbance [Unknown]
  - Movement disorder [Unknown]
  - Tremor [Unknown]
  - General physical health deterioration [Unknown]
  - Insomnia [Unknown]
  - Drug ineffective [Unknown]
